FAERS Safety Report 6547873-4 (Version None)
Quarter: 2010Q1

REPORT INFORMATION
  Report Type: 
  Country: None (occurrence: None)
  Receive Date: 20100124
  Receipt Date: 20091110
  Transmission Date: 20100710
  Serious: No
  Sender: FDA-Public Use
  Company Number: US-ALEXION-A200900948

PATIENT
  Sex: Male

DRUGS (5)
  1. SOLIRIS [Suspect]
     Indication: PAROXYSMAL NOCTURNAL HAEMOGLOBINURIA
     Dosage: STUDY E05
     Route: 042
     Dates: start: 20050101
  2. SOLIRIS [Suspect]
     Dosage: 1200 MG, Q2W
     Route: 042
     Dates: start: 20070101
  3. SOLIRIS [Suspect]
     Dosage: 900 MG, Q12D
     Route: 042
  4. SOLIRIS [Suspect]
     Dosage: 1200 MG, Q2W
     Route: 042
  5. SOLIRIS [Suspect]
     Dosage: 1500 MG, Q2W
     Route: 042
     Dates: start: 20091111

REACTIONS (3)
  - BLOOD LACTATE DEHYDROGENASE INCREASED [None]
  - HAEMOGLOBIN DECREASED [None]
  - PAROXYSMAL NOCTURNAL HAEMOGLOBINURIA [None]
